FAERS Safety Report 10062644 (Version 1)
Quarter: 2014Q2

REPORT INFORMATION
  Report Type: Spontaneous
  Country: AT (occurrence: AT)
  Receive Date: 20140407
  Receipt Date: 20140407
  Transmission Date: 20141212
  Serious: Yes (Hospitalization)
  Sender: FDA-Public Use
  Company Number: AT-PERRIGO-14AT003286

PATIENT
  Age: 28 Month
  Sex: Female
  Weight: 10 kg

DRUGS (2)
  1. ACETAMINOPHEN 120MG 579 [Suspect]
     Indication: RESPIRATORY TRACT INFECTION
     Dosage: 80 MG/KG, QD
     Route: 054
  2. CODEINE [Concomitant]
     Indication: RESPIRATORY TRACT INFECTION
     Route: 065

REACTIONS (6)
  - Toxicity to various agents [Recovered/Resolved]
  - Acute hepatic failure [Recovered/Resolved]
  - Hepatotoxicity [Recovered/Resolved]
  - Hepatic encephalopathy [Recovered/Resolved]
  - Hypoglycaemia [Recovered/Resolved]
  - Somnolence [Recovered/Resolved]
